FAERS Safety Report 24131229 (Version 4)
Quarter: 2024Q3

REPORT INFORMATION
  Report Type: Report from Study
  Country: US (occurrence: US)
  Receive Date: 20240724
  Receipt Date: 20240930
  Transmission Date: 20241017
  Serious: Yes (Other)
  Sender: NOVARTIS
  Company Number: US-002147023-NVSC2024US150213

PATIENT
  Sex: Female

DRUGS (1)
  1. KESIMPTA [Suspect]
     Active Substance: OFATUMUMAB
     Indication: Product used for unknown indication
     Dosage: UNK
     Route: 065

REACTIONS (13)
  - Carotid arteriosclerosis [Unknown]
  - Seizure [Unknown]
  - Lymphadenopathy [Unknown]
  - Drug ineffective [Unknown]
  - Peripheral swelling [Unknown]
  - Pyrexia [Unknown]
  - Lethargy [Unknown]
  - Headache [Unknown]
  - Pain [Unknown]
  - Nausea [Unknown]
  - Vitamin D deficiency [Unknown]
  - Pallor [Unknown]
  - Micturition disorder [Unknown]
